FAERS Safety Report 8511697-9 (Version None)
Quarter: 2012Q3

REPORT INFORMATION
  Report Type: 
  Country: None (occurrence: None)
  Receive Date: 20120716
  Receipt Date: 20120705
  Transmission Date: 20120928
  Serious: Yes (Hospitalization)
  Sender: FDA-Public Use
  Company Number: JP-MSD-1207JPN001801

PATIENT

DRUGS (6)
  1. PEG-INTRON [Suspect]
     Dosage: UNK
     Route: 058
     Dates: start: 20120625
  2. REBETOL [Suspect]
     Indication: HEPATITIS C
     Dosage: 600 MG, QD
     Route: 048
     Dates: start: 20120612, end: 20120618
  3. REBETOL [Suspect]
     Dosage: UNK
     Route: 048
     Dates: start: 20120625
  4. TELAPREVIR [Suspect]
     Dosage: UNK
     Dates: start: 20120625
  5. PEG-INTRON [Suspect]
     Indication: HEPATITIS C
     Dosage: 80 MICROGRAM, QW
     Route: 058
     Dates: start: 20120612, end: 20120618
  6. TELAPREVIR [Suspect]
     Indication: HEPATITIS C
     Dosage: 1500 MG, QD
     Route: 048
     Dates: start: 20120612, end: 20120618

REACTIONS (1)
  - RASH [None]
